FAERS Safety Report 9386032 (Version 3)
Quarter: 2013Q4

REPORT INFORMATION
  Report Type: Spontaneous
  Country: US (occurrence: US)
  Receive Date: 20130705
  Receipt Date: 20131014
  Transmission Date: 20140711
  Serious: Yes (Other)
  Sender: FDA-Public Use
  Company Number: US-RB-049269-13

PATIENT
  Age: 27 Year
  Sex: Female
  Weight: 82 kg

DRUGS (3)
  1. SUBOXONE FILM [Suspect]
     Indication: DRUG DEPENDENCE
     Dosage: SUBOXONE FILM
     Route: 060
     Dates: start: 20130104, end: 20130117
  2. SUBUTEX [Suspect]
     Indication: DRUG DEPENDENCE
     Route: 060
     Dates: start: 20130118, end: 2013
  3. SUBUTEX [Suspect]
     Route: 060
     Dates: start: 2013

REACTIONS (10)
  - Maternal exposure during pregnancy [Recovered/Resolved]
  - Peptic ulcer [Unknown]
  - Nausea [Not Recovered/Not Resolved]
  - Vomiting [Not Recovered/Not Resolved]
  - Premature labour [Recovered/Resolved]
  - Pre-eclampsia [Recovered/Resolved]
  - Anxiety [Unknown]
  - Muscle spasms [Unknown]
  - Dyspnoea [Unknown]
  - Drug abuse [Recovered/Resolved]
